FAERS Safety Report 5619087-3 (Version None)
Quarter: 2008Q1

REPORT INFORMATION
  Report Type: 
  Country: None (occurrence: None)
  Receive Date: 20080207
  Receipt Date: 20080129
  Transmission Date: 20080703
  Serious: Yes (Other)
  Sender: FDA-Public Use
  Company Number: US-PFIZER INC-2008009911

PATIENT
  Sex: Male
  Weight: 31.8 kg

DRUGS (2)
  1. LYRICA [Suspect]
     Indication: NERVOUS SYSTEM DISORDER
  2. ATIVAN [Concomitant]

REACTIONS (9)
  - ABASIA [None]
  - ACTIVITIES OF DAILY LIVING IMPAIRED [None]
  - COGNITIVE DISORDER [None]
  - DYSARTHRIA [None]
  - FEELING ABNORMAL [None]
  - FEELING DRUNK [None]
  - IMPAIRED WORK ABILITY [None]
  - VISUAL DISTURBANCE [None]
  - WEIGHT INCREASED [None]
